FAERS Safety Report 7784814-6 (Version None)
Quarter: 2011Q3

REPORT INFORMATION
  Report Type: 
  Country: None (occurrence: None)
  Receive Date: 20110928
  Receipt Date: 20110923
  Transmission Date: 20111222
  Serious: Yes (Other)
  Sender: FDA-Public Use
  Company Number: NL-ROXANE LABORATORIES, INC.-2011-RO-01339RO

PATIENT
  Age: 5 Month
  Sex: Male

DRUGS (1)
  1. PROPRANOLOL [Suspect]
     Indication: HAEMANGIOMA

REACTIONS (3)
  - CONSTIPATION [None]
  - POOR QUALITY SLEEP [None]
  - HYPOTENSION [None]
